FAERS Safety Report 7049702-1 (Version None)
Quarter: 2010Q4

REPORT INFORMATION
  Report Type: 
  Country: None (occurrence: None)
  Receive Date: 20101018
  Receipt Date: 20101011
  Transmission Date: 20110411
  Serious: Yes (Other)
  Sender: FDA-Public Use
  Company Number: A0886938A

PATIENT
  Age: 30 Year
  Sex: Female

DRUGS (5)
  1. COMBIVIR [Suspect]
     Indication: ANTIVIRAL TREATMENT
     Dosage: 2TAB PER DAY
     Route: 048
     Dates: start: 20100621, end: 20100717
  2. REYATAZ [Suspect]
     Indication: ANTIVIRAL TREATMENT
     Dosage: 30MG PER DAY
     Route: 048
     Dates: start: 20100621
  3. NORVIR [Suspect]
     Indication: ANTIVIRAL TREATMENT
     Dosage: 100MG PER DAY
     Route: 048
     Dates: start: 20100621
  4. TRUVADA [Suspect]
     Indication: ANTIVIRAL TREATMENT
     Dosage: 1TAB PER DAY
     Route: 048
     Dates: start: 20100717
  5. ZIDOVUDINE [Suspect]
     Indication: ANTIVIRAL TREATMENT
     Route: 042
     Dates: start: 20100914, end: 20100914

REACTIONS (5)
  - CARDIOVASCULAR DISORDER [None]
  - DRUG EXPOSURE DURING PREGNANCY [None]
  - INDUCED LABOUR [None]
  - LIVE BIRTH [None]
  - NAUSEA [None]
